FAERS Safety Report 9165465 (Version 1)
Quarter: 2013Q1

REPORT INFORMATION
  Report Type: Report from Study
  Country: CO (occurrence: CO)
  Receive Date: 20130315
  Receipt Date: 20130315
  Transmission Date: 20140127
  Serious: Yes (Hospitalization, Disabling)
  Sender: FDA-Public Use
  Company Number: CO-SANOFI-AVENTIS-2013SA024062

PATIENT
  Age: 53 Year
  Sex: Male

DRUGS (7)
  1. INSULIN GLARGINE [Suspect]
     Indication: DIABETES MELLITUS
     Route: 058
     Dates: start: 2011
  2. INSULIN GLULISINE [Suspect]
     Indication: DIABETES MELLITUS
     Route: 058
     Dates: start: 2011
  3. FUROSEMIDE [Concomitant]
     Indication: HYPERTENSION
     Dosage: DOSE: HBP
     Route: 048
  4. LOSARTAN [Concomitant]
     Indication: HYPERTENSION
     Dosage: DOSE: HBP
     Route: 048
  5. AMITRIPTYLINE [Concomitant]
     Route: 048
  6. ACETYLSALICYLIC ACID [Concomitant]
     Route: 048
  7. VERAPAMIL [Concomitant]
     Indication: HYPERTENSION
     Dosage: DOSE: HBP
     Route: 048

REACTIONS (1)
  - Infected skin ulcer [Recovering/Resolving]
